FAERS Safety Report 13733062 (Version 2)
Quarter: 2017Q3

REPORT INFORMATION
  Report Type: Spontaneous
  Country: DE (occurrence: DE)
  Receive Date: 20170707
  Receipt Date: 20170727
  Transmission Date: 20171127
  Serious: Yes (Other)
  Sender: FDA-Public Use
  Company Number: DE-GLAXOSMITHKLINE-DE2017GSK104398

PATIENT
  Sex: Female
  Weight: 85 kg

DRUGS (1)
  1. VOLTAREN [Suspect]
     Active Substance: DICLOFENAC SODIUM
     Indication: RHEUMATIC FEVER
     Dosage: 150 MG, QD (INTERMITTENT ON DEMAND)
     Route: 065
     Dates: start: 1983

REACTIONS (6)
  - Abdominal pain [Recovered/Resolved]
  - Gastrointestinal disorder [Recovered/Resolved]
  - Hypersensitivity [Recovered/Resolved with Sequelae]
  - Faeces discoloured [Recovered/Resolved]
  - Pancreatitis [Recovered/Resolved]
  - Frequent bowel movements [Recovered/Resolved]
